FAERS Safety Report 5484547-5 (Version None)
Quarter: 2007Q4

REPORT INFORMATION
  Report Type: 
  Country: None (occurrence: None)
  Receive Date: 20071012
  Receipt Date: 20071002
  Transmission Date: 20080405
  Serious: Yes (Hospitalization, Other)
  Sender: FDA-Public Use
  Company Number: JP-PFIZER INC-2007083602

PATIENT
  Sex: Female
  Weight: 50 kg

DRUGS (5)
  1. FARMORUBICIN RD [Suspect]
     Indication: BREAST CANCER
     Dosage: DAILY DOSE:140MG-FREQ:CYCLIC
     Route: 042
  2. FLUOROURACIL [Suspect]
     Indication: BREAST CANCER
     Dosage: DAILY DOSE:730MG-FREQ:CYCLIC
     Route: 042
  3. ENDOXAN [Suspect]
     Indication: BREAST CANCER
     Dosage: DAILY DOSE:730MG-FREQ:CYCLIC
     Route: 042
  4. KYTRIL [Concomitant]
     Route: 042
  5. DECADRON [Concomitant]
     Route: 042

REACTIONS (2)
  - ENTEROCOLITIS HAEMORRHAGIC [None]
  - WHITE BLOOD CELL COUNT DECREASED [None]
